FAERS Safety Report 8143528-3 (Version None)
Quarter: 2012Q1

REPORT INFORMATION
  Report Type: 
  Country: None (occurrence: None)
  Receive Date: 20120217
  Receipt Date: 20120213
  Transmission Date: 20120608
  Serious: Yes (Hospitalization, Other)
  Sender: FDA-Public Use
  Company Number: JP-PFIZER INC-2011313801

PATIENT
  Age: 54 Year
  Sex: Female

DRUGS (1)
  1. AZULFIDINE [Suspect]
     Indication: RHEUMATOID ARTHRITIS
     Dosage: 1 G/D
     Route: 048
     Dates: start: 20090121

REACTIONS (4)
  - HISTIOCYTOSIS HAEMATOPHAGIC [None]
  - DRUG RASH WITH EOSINOPHILIA AND SYSTEMIC SYMPTOMS [None]
  - ACUTE HEPATIC FAILURE [None]
  - SERUM FERRITIN INCREASED [None]
